FAERS Safety Report 11225240 (Version 3)
Quarter: 2015Q3

REPORT INFORMATION
  Report Type: Spontaneous
  Country: JP (occurrence: JP)
  Receive Date: 20150629
  Receipt Date: 20150728
  Transmission Date: 20151125
  Serious: Yes (Other)
  Sender: FDA-Public Use
  Company Number: JP-PFIZER INC-2015211544

PATIENT
  Age: 54 Year
  Sex: Male
  Weight: 72 kg

DRUGS (3)
  1. DOMPERIDONE TYK [Suspect]
     Active Substance: DOMPERIDONE
     Indication: NICOTINE DEPENDENCE
     Dosage: 1 DF, 2X/DAY
     Route: 048
     Dates: start: 20150516
  2. CHAMPIX [Suspect]
     Active Substance: VARENICLINE TARTRATE
     Indication: NICOTINE DEPENDENCE
     Dosage: 1 DF, 2X/DAY
     Route: 048
     Dates: start: 20150516, end: 20150526
  3. CHAMPIX [Suspect]
     Active Substance: VARENICLINE TARTRATE
     Dosage: REDUCED DOSE
     Route: 048
     Dates: start: 20150613

REACTIONS (3)
  - Accident [Recovering/Resolving]
  - Altered state of consciousness [Unknown]
  - Limb injury [Recovering/Resolving]

NARRATIVE: CASE EVENT DATE: 20150526
